FAERS Safety Report 10375006 (Version 2)
Quarter: 2014Q3

REPORT INFORMATION
  Report Type: Spontaneous
  Country: DE (occurrence: DE)
  Receive Date: 20140811
  Receipt Date: 20140910
  Transmission Date: 20150326
  Serious: Yes (Other)
  Sender: FDA-Public Use
  Company Number: DE-SHIRE-DE201404436

PATIENT
  Age: 11 Year
  Sex: Male
  Weight: 44 kg

DRUGS (3)
  1. ELVANSE [Suspect]
     Active Substance: LISDEXAMFETAMINE DIMESYLATE
     Dosage: 30 MG, 1X/DAY:QD
     Route: 048
     Dates: start: 20140215, end: 201405
  2. ELVANSE [Suspect]
     Active Substance: LISDEXAMFETAMINE DIMESYLATE
     Indication: ATTENTION DEFICIT/HYPERACTIVITY DISORDER
     Dosage: 50 MG, 1X/DAY:QD
     Route: 048
     Dates: start: 20140208, end: 20140214
  3. ELVANSE [Suspect]
     Active Substance: LISDEXAMFETAMINE DIMESYLATE
     Dosage: 30 MG, 1X/DAY:QD
     Route: 048
     Dates: start: 20130830, end: 20140207

REACTIONS (14)
  - Anxiety [Recovering/Resolving]
  - Depressive symptom [Recovering/Resolving]
  - Educational problem [Recovering/Resolving]
  - Compulsive handwashing [Recovering/Resolving]
  - Crying [Recovering/Resolving]
  - Tic [Recovered/Resolved with Sequelae]
  - Condition aggravated [Recovered/Resolved with Sequelae]
  - Suicidal ideation [Recovering/Resolving]
  - Negative thoughts [Recovering/Resolving]
  - Restlessness [Recovered/Resolved with Sequelae]
  - Depressed mood [Recovering/Resolving]
  - Psychomotor hyperactivity [Recovered/Resolved with Sequelae]
  - Aggression [Recovering/Resolving]
  - Decreased interest [Recovered/Resolved with Sequelae]

NARRATIVE: CASE EVENT DATE: 201402
